FAERS Safety Report 5957563-4 (Version None)
Quarter: 2008Q4

REPORT INFORMATION
  Report Type: 
  Country: None (occurrence: None)
  Receive Date: 20081117
  Receipt Date: 20081117
  Transmission Date: 20090506
  Serious: Yes (Other)
  Sender: FDA-Public Use
  Company Number: None

PATIENT
  Age: 48 Year
  Sex: Female
  Weight: 77.1115 kg

DRUGS (2)
  1. VYTORIN [Suspect]
     Dosage: 10/40 1 TABLET DAY
     Dates: start: 20080803, end: 20080922
  2. VYTORIN [Suspect]
     Dosage: 10/40 1 TABLET DAY
     Dates: start: 20081110

REACTIONS (1)
  - MYALGIA [None]
